FAERS Safety Report 23894492 (Version 7)
Quarter: 2024Q4

REPORT INFORMATION
  Report Type: Report from Study
  Country: JP (occurrence: JP)
  Receive Date: 20240524
  Receipt Date: 20241108
  Transmission Date: 20250114
  Serious: Yes (Hospitalization, Other)
  Sender: MERZ
  Company Number: JP-Merz Pharmaceuticals GmbH-24-01789

PATIENT

DRUGS (4)
  1. XEOMIN [Suspect]
     Active Substance: INCOBOTULINUMTOXINA
     Indication: Muscle spasticity
     Dosage: 400 INTERNATIONAL UNIT
     Route: 030
     Dates: start: 20230921, end: 20230921
  2. XEOMIN [Suspect]
     Active Substance: INCOBOTULINUMTOXINA
     Dosage: 400 INTERNATIONAL UNIT
     Route: 030
     Dates: start: 20240404, end: 20240404
  3. XEOMIN [Suspect]
     Active Substance: INCOBOTULINUMTOXINA
     Dosage: 400 INTERNATIONAL UNIT
     Route: 030
     Dates: start: 20231214, end: 20231214
  4. XEOMIN [Suspect]
     Active Substance: INCOBOTULINUMTOXINA
     Dosage: 300 INTERNATIONAL UNIT
     Route: 030
     Dates: start: 20240718, end: 20240718

REACTIONS (2)
  - Femur fracture [Recovered/Resolved]
  - Off label use [Unknown]

NARRATIVE: CASE EVENT DATE: 20230921
